FAERS Safety Report 25298477 (Version 1)
Quarter: 2025Q2

REPORT INFORMATION
  Report Type: Spontaneous
  Country: US (occurrence: US)
  Receive Date: 20250512
  Receipt Date: 20250512
  Transmission Date: 20250717
  Serious: No
  Sender: ROCHE
  Company Number: US-ROCHE-10000276941

PATIENT
  Age: 7 Decade
  Sex: Female

DRUGS (2)
  1. VABYSMO [Suspect]
     Active Substance: FARICIMAB-SVOA
     Indication: Age-related macular degeneration
     Route: 050
  2. AVASTIN [Suspect]
     Active Substance: BEVACIZUMAB
     Indication: Age-related macular degeneration
     Dosage: 25 MG/1 ML
     Route: 065

REACTIONS (2)
  - Eye inflammation [Recovered/Resolved]
  - Off label use [Unknown]
